FAERS Safety Report 5006566-5 (Version None)
Quarter: 2006Q2

REPORT INFORMATION
  Report Type: 
  Country: None (occurrence: None)
  Receive Date: 20060519
  Receipt Date: 20060516
  Transmission Date: 20061013
  Serious: Yes (Other)
  Sender: FDA-Public Use
  Company Number: 2006PK01062

PATIENT
  Age: 249 Month
  Sex: Female
  Weight: 50 kg

DRUGS (4)
  1. SEROQUEL [Suspect]
     Route: 048
     Dates: start: 20050205
  2. SURMONTIL [Concomitant]
     Dates: start: 20050717
  3. SERTRALINE HCL [Concomitant]
     Dates: start: 20020101
  4. TRUXAL [Concomitant]
     Dates: start: 20040101

REACTIONS (1)
  - LEUKOPENIA [None]
